FAERS Safety Report 5534730-5 (Version None)
Quarter: 2007Q4

REPORT INFORMATION
  Report Type: 
  Country: None (occurrence: None)
  Receive Date: 20071205
  Receipt Date: 20071124
  Transmission Date: 20080405
  Serious: Yes (Life-Threatening, Hospitalization, Other)
  Sender: FDA-Public Use
  Company Number: CH-GENENTECH-250177

PATIENT
  Sex: Male
  Weight: 68 kg

DRUGS (1)
  1. MABTHERA [Suspect]
     Indication: TRANSPLANT REJECTION
     Dosage: 375 MG/M2, UNK
     Route: 042
     Dates: start: 20070821, end: 20070821

REACTIONS (1)
  - ACUTE RESPIRATORY DISTRESS SYNDROME [None]
